FAERS Safety Report 7473924-9 (Version None)
Quarter: 2011Q2

REPORT INFORMATION
  Report Type: 
  Country: None (occurrence: None)
  Receive Date: 20110511
  Receipt Date: 20110429
  Transmission Date: 20111010
  Serious: Yes (Other)
  Sender: FDA-Public Use
  Company Number: PHHY2011BR36766

PATIENT
  Sex: Male

DRUGS (1)
  1. BUFFERIN [Suspect]
     Dosage: 81 MG, UNK
     Route: 048

REACTIONS (1)
  - DIABETES MELLITUS [None]
